FAERS Safety Report 6412091-7 (Version None)
Quarter: 2009Q4

REPORT INFORMATION
  Report Type: 
  Country: None (occurrence: None)
  Receive Date: 20091020
  Receipt Date: 20091007
  Transmission Date: 20100525
  Serious: Yes (Other)
  Sender: FDA-Public Use
  Company Number: 2009AC000135

PATIENT
  Sex: Female

DRUGS (13)
  1. DIGOXIN [Suspect]
     Dosage: PO
     Route: 048
     Dates: start: 20020101
  2. ACETAMINOPHEN [Concomitant]
  3. NITROGLYCERIN [Concomitant]
  4. FUROSEMIDE [Concomitant]
  5. CAPTOPRIL [Concomitant]
  6. PREMARIN [Concomitant]
  7. POTASSIUM CL [Concomitant]
  8. LOVASTATIN [Concomitant]
  9. GEMFIBROZIL [Concomitant]
  10. ACIPHEX [Concomitant]
  11. KLOR-CON [Concomitant]
  12. NITROLINGUAL [Concomitant]
  13. SULINDAC [Concomitant]

REACTIONS (3)
  - ECONOMIC PROBLEM [None]
  - MULTIPLE INJURIES [None]
  - SURGERY [None]
